FAERS Safety Report 18116546 (Version 2)
Quarter: 2020Q4

REPORT INFORMATION
  Report Type: Other
  Country: US (occurrence: US)
  Receive Date: 20200805
  Receipt Date: 20201015
  Transmission Date: 20210113
  Serious: Yes (Hospitalization, Other)
  Sender: FDA-Public Use
  Company Number: US-WES PHARMA INC-2088204

PATIENT
  Age: 24 Year
  Sex: Male

DRUGS (2)
  1. OXYCODONE AND ACETAMINOPHEN [Suspect]
     Active Substance: ACETAMINOPHEN\OXYCODONE HYDROCHLORIDE
     Indication: ABDOMINAL PAIN
     Route: 048
  2. BUDESONIDE. [Concomitant]
     Active Substance: BUDESONIDE
     Route: 048

REACTIONS (13)
  - Drug use disorder [Unknown]
  - Drug dependence [Unknown]
  - Overdose [Unknown]
  - Restlessness [Unknown]
  - Myalgia [Unknown]
  - Anxiety [Unknown]
  - Chills [Unknown]
  - Intentional product misuse [Unknown]
  - Drug withdrawal syndrome [Unknown]
  - Microcytic anaemia [Unknown]
  - Hyperhidrosis [Unknown]
  - Nasal congestion [Unknown]
  - Arthralgia [Unknown]
